FAERS Safety Report 17126162 (Version 2)
Quarter: 2019Q4

REPORT INFORMATION
  Report Type: Report from Study
  Country: None (occurrence: AT)
  Receive Date: 20191209
  Receipt Date: 20191213
  Transmission Date: 20200122
  Serious: Yes (Hospitalization)
  Sender: FDA-Public Use
  Company Number: AT-ABBVIE-19K-009-2994601-00

PATIENT
  Sex: Male

DRUGS (2)
  1. DUODOPA [Suspect]
     Active Substance: CARBIDOPA\LEVODOPA
     Dosage: MD: 9ML, CR DAYTIME: 1.8ML/H, ED: 1ML, 16H
     Route: 050
     Dates: start: 20171004
  2. DUODOPA [Suspect]
     Active Substance: CARBIDOPA\LEVODOPA
     Indication: PARKINSON^S DISEASE
     Dosage: 16H, MD: 9ML, CR DAYTIME: 2ML, ED: 1ML
     Route: 050

REACTIONS (5)
  - Embedded device [Recovered/Resolved]
  - Weight decreased [Not Recovered/Not Resolved]
  - On and off phenomenon [Recovering/Resolving]
  - Dysphagia [Not Recovered/Not Resolved]
  - Cholelithiasis [Unknown]

NARRATIVE: CASE EVENT DATE: 2019
